FAERS Safety Report 13732323 (Version 1)
Quarter: 2017Q3

REPORT INFORMATION
  Report Type: Spontaneous
  Country: US (occurrence: US)
  Receive Date: 20170707
  Receipt Date: 20170707
  Transmission Date: 20171127
  Serious: No
  Sender: FDA-Public Use
  Company Number: US-SA-2017SA080266

PATIENT
  Sex: Female

DRUGS (1)
  1. SAR231893 [Suspect]
     Active Substance: DUPILUMAB
     Route: 065
     Dates: start: 201704

REACTIONS (2)
  - Vertigo [Unknown]
  - Injection site erythema [Unknown]

NARRATIVE: CASE EVENT DATE: 201704
